FAERS Safety Report 11634589 (Version 1)
Quarter: 2015Q4

REPORT INFORMATION
  Report Type: Report from Study
  Country: US (occurrence: US)
  Receive Date: 20151015
  Receipt Date: 20151015
  Transmission Date: 20160304
  Serious: Yes (Hospitalization)
  Sender: FDA-Public Use
  Company Number: US-ACTELION-A-NJ2015-125436

PATIENT
  Age: 70 Year
  Sex: Female

DRUGS (5)
  1. OXYGEN. [Concomitant]
     Active Substance: OXYGEN
     Dosage: 3 L, AT HS
  2. MACITENTAN [Suspect]
     Active Substance: MACITENTAN
     Indication: PULMONARY ARTERIAL HYPERTENSION
     Dosage: 10 MG, UNK
     Route: 048
     Dates: start: 20140321
  3. TREPROSTINIL [Concomitant]
     Active Substance: TREPROSTINIL
     Dosage: 4 MG, TID
     Route: 048
  4. OXYGEN. [Concomitant]
     Active Substance: OXYGEN
     Dosage: 3 L, CONTINUOUSLY
  5. TREPROSTINIL [Concomitant]
     Active Substance: TREPROSTINIL
     Dosage: 3 MG, TID
     Route: 048

REACTIONS (6)
  - Hypotension [Unknown]
  - Arterial stent insertion [Unknown]
  - Myocardial infarction [Unknown]
  - Arterial occlusive disease [Unknown]
  - Cyanosis [Unknown]
  - Arterial therapeutic procedure [Unknown]
